FAERS Safety Report 8140077-3 (Version None)
Quarter: 2012Q1

REPORT INFORMATION
  Report Type: 
  Country: None (occurrence: None)
  Receive Date: 20120215
  Receipt Date: 20120202
  Transmission Date: 20120608
  Serious: Yes (Other)
  Sender: FDA-Public Use
  Company Number: ES-MYLANLABS-2012S1002760

PATIENT
  Age: 77 Year
  Sex: Male

DRUGS (9)
  1. VALPROIC ACID [Suspect]
     Indication: EPILEPSY
     Route: 065
  2. VALPROIC ACID [Interacting]
     Dosage: 500 MG/8 HOURS
     Route: 048
  3. ACENOCOUMAROL [Interacting]
     Indication: ATRIAL FIBRILLATION
     Dosage: 23.5-25MG PER WEEK
     Route: 065
  4. ATORVASTATIN [Concomitant]
     Dosage: 10 MG/DAY
     Route: 065
  5. VALPROIC ACID [Interacting]
     Dosage: 1200MG (500MG, 200MG, 500MG); THEN 500 MG/8H FROM DAY 2
     Route: 048
  6. BISOPROLOL FUMARATE [Concomitant]
     Dosage: 1.25 MG/DAY
     Route: 065
  7. OMEPRAZOLE [Concomitant]
     Dosage: 20 MG/DAY
     Route: 065
  8. VALPROIC ACID [Interacting]
     Dosage: ON ADMISSION; THEN 1200MG THE NEXT DAY
     Route: 041
  9. ENALAPRIL [Concomitant]
     Dosage: 5 MG/DAY
     Route: 065

REACTIONS (2)
  - INTERNATIONAL NORMALISED RATIO INCREASED [None]
  - DRUG INTERACTION [None]
